FAERS Safety Report 17593454 (Version 1)
Quarter: 2020Q1

REPORT INFORMATION
  Report Type: Spontaneous
  Country: DE (occurrence: DE)
  Receive Date: 20200327
  Receipt Date: 20200327
  Transmission Date: 20200409
  Serious: Yes (Other)
  Sender: FDA-Public Use
  Company Number: NVSC2020DE085900

PATIENT
  Age: 65 Year
  Sex: Male

DRUGS (2)
  1. COSENTYX [Suspect]
     Active Substance: SECUKINUMAB
     Indication: PSORIASIS
     Dosage: 300 MG, QMO, SINCE 1 YEAR AGO
     Route: 065
  2. COSENTYX [Suspect]
     Active Substance: SECUKINUMAB
     Indication: SPONDYLOARTHROPATHY
     Dosage: 150 MG, QMO, SINCE 2 YEARS
     Route: 065

REACTIONS (6)
  - Infection susceptibility increased [Recovered/Resolved]
  - Skin plaque [Recovered/Resolved]
  - Herpes virus infection [Recovered/Resolved]
  - Respiratory tract infection [Recovered/Resolved]
  - Oropharyngeal pain [Recovered/Resolved]
  - Aphthous ulcer [Recovered/Resolved]
